FAERS Safety Report 11037894 (Version 1)
Quarter: 2015Q2

REPORT INFORMATION
  Report Type: Spontaneous
  Country: US (occurrence: None)
  Receive Date: 20150415
  Receipt Date: 20150415
  Transmission Date: 20150821
  Serious: Yes (Hospitalization)
  Sender: FDA-Public Use
  Company Number: None

PATIENT
  Age: 70 Year
  Sex: Male
  Weight: 107.6 kg

DRUGS (1)
  1. SEVOFLURANE. [Suspect]
     Active Substance: SEVOFLURANE
     Indication: ANAESTHESIA
     Dosage: 65% ML
     Route: 055
     Dates: start: 20150413, end: 20150413

REACTIONS (3)
  - Hyperthermia malignant [None]
  - Hyperkalaemia [None]
  - Tachycardia [None]

NARRATIVE: CASE EVENT DATE: 20150413
